FAERS Safety Report 11061221 (Version 1)
Quarter: 2015Q2

REPORT INFORMATION
  Report Type: Spontaneous
  Country: BR (occurrence: BR)
  Receive Date: 20150424
  Receipt Date: 20150424
  Transmission Date: 20150821
  Serious: Yes (Other)
  Sender: FDA-Public Use
  Company Number: BR-ASTRAZENECA-2015SE36198

PATIENT
  Age: 24264 Day
  Sex: Female

DRUGS (4)
  1. FORXIGA [Suspect]
     Active Substance: DAPAGLIFLOZIN
     Indication: TYPE 1 DIABETES MELLITUS
     Dosage: DAILY
     Route: 048
     Dates: end: 20150405
  2. TORLOS [Concomitant]
     Indication: HYPERTENSION
     Route: 048
  3. METFORMIN [Suspect]
     Active Substance: METFORMIN HYDROCHLORIDE
     Indication: TYPE 1 DIABETES MELLITUS
     Dosage: NON AZ DRUG, TWO TIMES A DAY
     Route: 048
  4. AAS INFANTIL [Concomitant]
     Active Substance: ASPIRIN
     Route: 048

REACTIONS (3)
  - Product use issue [Recovered/Resolved]
  - Drug dose omission [Not Recovered/Not Resolved]
  - Hyperglycaemia [Unknown]

NARRATIVE: CASE EVENT DATE: 20150406
